FAERS Safety Report 16944307 (Version 1)
Quarter: 2019Q4

REPORT INFORMATION
  Report Type: Spontaneous
  Country: US (occurrence: US)
  Receive Date: 20191022
  Receipt Date: 20191022
  Transmission Date: 20200122
  Serious: No
  Sender: FDA-Public Use
  Company Number: US-TEVA-2019-US-1123880

PATIENT
  Sex: Male

DRUGS (1)
  1. PROAIR HFA [Suspect]
     Active Substance: ALBUTEROL SULFATE
     Route: 065

REACTIONS (5)
  - Respiratory rate increased [Recovered/Resolved]
  - Hyperventilation [Recovered/Resolved]
  - Bronchospasm paradoxical [Unknown]
  - Movement disorder [Recovered/Resolved]
  - Dyspnoea [Recovered/Resolved]
